FAERS Safety Report 13763838 (Version 2)
Quarter: 2018Q2

REPORT INFORMATION
  Report Type: Spontaneous
  Country: AU (occurrence: AU)
  Receive Date: 20170718
  Receipt Date: 20180420
  Transmission Date: 20180711
  Serious: Yes (Other)
  Sender: FDA-Public Use
  Company Number: AU-PFIZER INC-2017254037

PATIENT
  Age: 27 Year
  Sex: Female
  Weight: 102 kg

DRUGS (3)
  1. CLOPINE [Suspect]
     Active Substance: CLOZAPINE
     Dosage: UNK
     Dates: start: 20141102
  2. CLOZAPINE. [Suspect]
     Active Substance: CLOZAPINE
     Dosage: UNK
     Dates: start: 20100709
  3. VENLAFAXINE HCL [Suspect]
     Active Substance: VENLAFAXINE HYDROCHLORIDE
     Indication: DEPRESSION
     Dosage: 150 MG, 1X/DAY NOCTE
     Route: 048

REACTIONS (4)
  - Psychotic symptom [Unknown]
  - Feeling abnormal [Unknown]
  - Drug dose omission [Unknown]
  - Agitation [Unknown]
